FAERS Safety Report 24045777 (Version 1)
Quarter: 2024Q3

REPORT INFORMATION
  Report Type: Spontaneous
  Country: MX (occurrence: MX)
  Receive Date: 20240703
  Receipt Date: 20240703
  Transmission Date: 20241017
  Serious: Yes (Other)
  Sender: NOVARTIS
  Company Number: MX-002147023-NVSC2024MX135697

PATIENT
  Sex: Female

DRUGS (1)
  1. GLIVEC [Suspect]
     Active Substance: IMATINIB MESYLATE
     Indication: Chronic myeloid leukaemia
     Dosage: 200 MG (2 OF 100 MG)
     Route: 065

REACTIONS (3)
  - Limb mass [Unknown]
  - Carcinoid tumour [Unknown]
  - Blood creatinine increased [Unknown]
